FAERS Safety Report 19710723 (Version 3)
Quarter: 2022Q1

REPORT INFORMATION
  Report Type: Spontaneous
  Country: US (occurrence: US)
  Receive Date: 20210816
  Receipt Date: 20220211
  Transmission Date: 20220423
  Serious: No
  Sender: FDA-Public Use
  Company Number: US-BIOGEN-2020BI00903150

PATIENT
  Sex: Female

DRUGS (1)
  1. TECFIDERA [Suspect]
     Active Substance: DIMETHYL FUMARATE
     Indication: Multiple sclerosis
     Route: 065
     Dates: start: 20130521

REACTIONS (7)
  - Product dose omission issue [Unknown]
  - Inappropriate schedule of product administration [Unknown]
  - Multiple sclerosis relapse [Unknown]
  - Flushing [Not Recovered/Not Resolved]
  - Rash [Not Recovered/Not Resolved]
  - Hot flush [Unknown]
  - Central nervous system lesion [Not Recovered/Not Resolved]
